FAERS Safety Report 9557202 (Version 1)
Quarter: 2013Q3

REPORT INFORMATION
  Report Type: Spontaneous
  Country: US (occurrence: None)
  Receive Date: 20130724
  Receipt Date: 20130724
  Transmission Date: 20140515
  Serious: No
  Sender: FDA-Public Use
  Company Number: PHEH2013US006911

PATIENT
  Age: 66 Year
  Sex: Female

DRUGS (1)
  1. GILENYA (FINGOLIMOD) CAPSULE, 0.5MG [Suspect]
     Indication: MULTIPLE SCLEROSIS
     Route: 048
     Dates: start: 20130314

REACTIONS (5)
  - Oropharyngeal pain [None]
  - Nasal congestion [None]
  - Hypoaesthesia oral [None]
  - Sinusitis [None]
  - Dyspnoea [None]
